FAERS Safety Report 22753006 (Version 2)
Quarter: 2024Q2

REPORT INFORMATION
  Report Type: Report from Study
  Country: CA (occurrence: CA)
  Receive Date: 20230726
  Receipt Date: 20240502
  Transmission Date: 20240715
  Serious: Yes (Hospitalization)
  Sender: FDA-Public Use
  Company Number: CA-ABBVIE-5341529

PATIENT
  Age: 76 Year
  Sex: Male

DRUGS (1)
  1. LUPRON DEPOT [Suspect]
     Active Substance: LEUPROLIDE ACETATE
     Indication: Prostate cancer
     Route: 030
     Dates: start: 20201014

REACTIONS (4)
  - Rib fracture [Unknown]
  - Fall [Unknown]
  - Spinal fracture [Unknown]
  - Face injury [Unknown]

NARRATIVE: CASE EVENT DATE: 20230712
